FAERS Safety Report 6590503-6 (Version None)
Quarter: 2010Q1

REPORT INFORMATION
  Report Type: 
  Country: None (occurrence: None)
  Receive Date: 20100219
  Receipt Date: 20100209
  Transmission Date: 20100710
  Serious: Yes (Life-Threatening)
  Sender: FDA-Public Use
  Company Number: DK-ELI_LILLY_AND_COMPANY-DK201001001136

PATIENT
  Sex: Female
  Weight: 60 kg

DRUGS (5)
  1. ZYPREXA [Suspect]
     Dosage: UNK, UNK
     Dates: start: 20090201, end: 20100101
  2. CITALOPRAM HYDROBROMIDE [Concomitant]
     Indication: DEPRESSION
     Dosage: 30 MG, UNK
  3. THYCAPZOL [Concomitant]
     Indication: HYPOTHYROIDISM
     Dosage: 5 MG, UNK
  4. VIBEDEN [Concomitant]
     Dosage: 1 D/F, UNK
  5. OXAPAX [Concomitant]
     Indication: ANXIETY
     Dosage: 45 MG, UNK

REACTIONS (5)
  - BRAIN OEDEMA [None]
  - DIZZINESS [None]
  - FATIGUE [None]
  - SWELLING FACE [None]
  - VISION BLURRED [None]
